FAERS Safety Report 5390254-X (Version None)
Quarter: 2007Q3

REPORT INFORMATION
  Report Type: 
  Country: None (occurrence: None)
  Receive Date: 20070718
  Receipt Date: 20070709
  Transmission Date: 20080115
  Serious: Yes (Hospitalization)
  Sender: FDA-Public Use
  Company Number: DE-ABBOTT-07P-062-0374088-00

PATIENT
  Sex: Male
  Weight: 63 kg

DRUGS (1)
  1. HUMIRA [Suspect]
     Indication: PSORIATIC ARTHROPATHY
     Route: 058
     Dates: start: 20060601, end: 20070202

REACTIONS (4)
  - INFLUENZA LIKE ILLNESS [None]
  - PULMONARY TUBERCULOSIS [None]
  - RESPIRATORY DISTRESS [None]
  - TUBERCULOUS PLEURISY [None]
